FAERS Safety Report 22603622 (Version 1)
Quarter: 2023Q2

REPORT INFORMATION
  Report Type: Spontaneous
  Country: TR (occurrence: TR)
  Receive Date: 20230615
  Receipt Date: 20230615
  Transmission Date: 20230722
  Serious: Yes (Hospitalization, Other)
  Sender: FDA-Public Use
  Company Number: TR-ABBVIE-5291189

PATIENT
  Age: 31 Year
  Sex: Female

DRUGS (3)
  1. BOTULINUM TOXIN TYPE A [Suspect]
     Active Substance: BOTULINUM TOXIN TYPE A
     Indication: Prophylaxis
     Dosage: TIME INTERVAL: AS NECESSARY
     Route: 065
     Dates: start: 202306, end: 202306
  2. BOTULINUM TOXIN TYPE A [Suspect]
     Active Substance: BOTULINUM TOXIN TYPE A
     Indication: Prophylaxis
     Dosage: TIME INTERVAL: AS NECESSARY
     Route: 065
     Dates: start: 202306, end: 202306
  3. BOTULINUM TOXIN TYPE A [Suspect]
     Active Substance: BOTULINUM TOXIN TYPE A
     Indication: Prophylaxis
     Dosage: TIME INTERVAL: AS NECESSARY
     Route: 065
     Dates: start: 202306, end: 202306

REACTIONS (7)
  - Toxicity to various agents [Recovering/Resolving]
  - Oxygen saturation decreased [Recovering/Resolving]
  - Urinary incontinence [Recovering/Resolving]
  - Off label use [Recovered/Resolved]
  - Diplopia [Recovering/Resolving]
  - Hypoaesthesia [Recovering/Resolving]
  - Somnolence [Recovering/Resolving]

NARRATIVE: CASE EVENT DATE: 20230601
